FAERS Safety Report 6488027-X (Version None)
Quarter: 2009Q4

REPORT INFORMATION
  Report Type: 
  Country: None (occurrence: None)
  Receive Date: 20091209
  Receipt Date: 20091209
  Transmission Date: 20100525
  Serious: Yes (Hospitalization)
  Sender: FDA-Public Use
  Company Number: None

PATIENT
  Age: 63 Year
  Sex: Male
  Weight: 87.27 kg

DRUGS (1)
  1. TAMSULOSIN HCL [Suspect]
     Dosage: 0.4 MG HS PO
     Route: 048
     Dates: start: 20090713, end: 20090915

REACTIONS (2)
  - CARDIAC FAILURE CONGESTIVE [None]
  - LEUKOCYTOCLASTIC VASCULITIS [None]
